FAERS Safety Report 10398868 (Version 1)
Quarter: 2014Q3

REPORT INFORMATION
  Report Type: Spontaneous
  Country: US (occurrence: None)
  Receive Date: 20140819
  Receipt Date: 20140819
  Transmission Date: 20150326
  Serious: Yes (Other)
  Sender: FDA-Public Use
  Company Number: 2014SUP00025

PATIENT
  Age: 16 Year
  Sex: Female
  Weight: 49.9 kg

DRUGS (7)
  1. CALCIUM [Concomitant]
     Active Substance: CALCIUM
  2. MULTIVITAMIN [Concomitant]
     Active Substance: VITAMINS
  3. ZOLOFT [Concomitant]
     Active Substance: SERTRALINE HYDROCHLORIDE
  4. AMITRIPTYLINE [Concomitant]
     Active Substance: AMITRIPTYLINE
  5. TROKENDI XR [Suspect]
     Active Substance: TOPIRAMATE
     Indication: MIGRAINE
     Route: 048
     Dates: start: 20140429, end: 20140505
  6. MAGNESIUM [Concomitant]
     Active Substance: MAGNESIUM
  7. MINOCYCLINE [Concomitant]
     Active Substance: MINOCYCLINE\MINOCYCLINE HYDROCHLORIDE

REACTIONS (12)
  - Cognitive disorder [None]
  - Insomnia [None]
  - Body temperature increased [None]
  - Off label use [None]
  - Initial insomnia [None]
  - Learning disorder [None]
  - Depression [None]
  - Suicidal ideation [None]
  - Ear infection [None]
  - Middle insomnia [None]
  - Anxiety [None]
  - Hypohidrosis [None]

NARRATIVE: CASE EVENT DATE: 20140606
